FAERS Safety Report 20169126 (Version 2)
Quarter: 2022Q2

REPORT INFORMATION
  Report Type: Spontaneous
  Country: CA (occurrence: CA)
  Receive Date: 20211210
  Receipt Date: 20220407
  Transmission Date: 20220721
  Serious: Yes (Death, Hospitalization, Other)
  Sender: FDA-Public Use
  Company Number: CA-JNJFOC-20210858718

PATIENT
  Age: 78 Year
  Sex: Male

DRUGS (7)
  1. UPTRAVI [Suspect]
     Active Substance: SELEXIPAG
     Indication: Pulmonary arterial hypertension
     Route: 048
  2. UPTRAVI [Suspect]
     Active Substance: SELEXIPAG
     Route: 048
     Dates: start: 20211012
  3. AMBRISENTAN [Suspect]
     Active Substance: AMBRISENTAN
     Indication: Pulmonary arterial hypertension
     Route: 048
     Dates: start: 20210225
  4. ADCIRCA [Suspect]
     Active Substance: TADALAFIL
     Indication: Pulmonary arterial hypertension
     Route: 065
     Dates: start: 20161025
  5. ADCIRCA [Suspect]
     Active Substance: TADALAFIL
     Route: 065
     Dates: start: 20210225
  6. ADCIRCA [Suspect]
     Active Substance: TADALAFIL
     Route: 065
  7. ACETAMINOPHEN [Concomitant]
     Active Substance: ACETAMINOPHEN

REACTIONS (13)
  - Death [Fatal]
  - Hospitalisation [Fatal]
  - Hospice care [Fatal]
  - Cough [Fatal]
  - Neck pain [Fatal]
  - Headache [Fatal]
  - Musculoskeletal chest pain [Fatal]
  - Pruritus [Fatal]
  - Ear pain [Fatal]
  - Toothache [Fatal]
  - Back pain [Fatal]
  - Discomfort [Fatal]
  - Pain [Fatal]

NARRATIVE: CASE EVENT DATE: 20210101
